FAERS Safety Report 5674475-4 (Version None)
Quarter: 2008Q1

REPORT INFORMATION
  Report Type: 
  Country: None (occurrence: None)
  Receive Date: 20080320
  Receipt Date: 20080318
  Transmission Date: 20080703
  Serious: Yes (Hospitalization)
  Sender: FDA-Public Use
  Company Number: US-GENENTECH-257053

PATIENT
  Sex: Male
  Weight: 86.168 kg

DRUGS (5)
  1. RAPTIVA [Suspect]
     Indication: PSORIATIC ARTHROPATHY
     Dosage: 0.9 ML, 1/WEEK
     Route: 058
     Dates: start: 20070426, end: 20080301
  2. RAPTIVA [Suspect]
     Indication: PSORIASIS
  3. PRILOSEC [Concomitant]
     Indication: DRUG USE FOR UNKNOWN INDICATION
     Dosage: 20 MG, UNK
     Dates: start: 20070614
  4. MOTRIN [Concomitant]
     Indication: DRUG USE FOR UNKNOWN INDICATION
     Dosage: 800 MG, BID
  5. ALLEGRA [Concomitant]
     Indication: DRUG USE FOR UNKNOWN INDICATION
     Dosage: 60 MG, BID

REACTIONS (1)
  - MENINGITIS VIRAL [None]
